FAERS Safety Report 13421665 (Version 1)
Quarter: 2017Q2

REPORT INFORMATION
  Report Type: Spontaneous
  Country: CH (occurrence: CH)
  Receive Date: 20170410
  Receipt Date: 20170410
  Transmission Date: 20170830
  Serious: Yes (Other)
  Sender: FDA-Public Use
  Company Number: PHHY2017CH048110

PATIENT
  Sex: Male

DRUGS (1)
  1. MOMETASONE FUROATE SANDOZ [Suspect]
     Active Substance: MOMETASONE FUROATE
     Indication: RHINITIS
     Dosage: 2 DF IN EACH NOSTRIL
     Route: 045

REACTIONS (1)
  - Anosmia [Not Recovered/Not Resolved]
